FAERS Safety Report 10595771 (Version 2)
Quarter: 2015Q1

REPORT INFORMATION
  Report Type: Spontaneous
  Country: US (occurrence: US)
  Receive Date: 20141120
  Receipt Date: 20150108
  Transmission Date: 20150720
  Serious: Yes (Other)
  Sender: FDA-Public Use
  Company Number: US-PFIZER INC-2014317120

PATIENT
  Age: 52 Year
  Sex: Female

DRUGS (2)
  1. PRISTIQ EXTENDED RELEASE [Suspect]
     Active Substance: DESVENLAFAXINE SUCCINATE
     Dosage: 150 MG, 1X/DAY
  2. PRISTIQ EXTENDED RELEASE [Suspect]
     Active Substance: DESVENLAFAXINE SUCCINATE
     Dosage: 100 MG, 2X/DAY

REACTIONS (6)
  - Drug prescribing error [Unknown]
  - Depression [Recovered/Resolved]
  - Insomnia [Unknown]
  - Suicidal ideation [Recovered/Resolved]
  - Bipolar disorder [Unknown]
  - Mania [Unknown]
